FAERS Safety Report 12884664 (Version 2)
Quarter: 2016Q4

REPORT INFORMATION
  Report Type: Spontaneous
  Country: US (occurrence: US)
  Receive Date: 20161026
  Receipt Date: 20161116
  Transmission Date: 20170207
  Serious: No
  Sender: FDA-Public Use
  Company Number: US-BAYER-2016-202796

PATIENT
  Age: 89 Year
  Sex: Female
  Weight: 65.76 kg

DRUGS (5)
  1. VITAMIN E [Concomitant]
     Active Substance: .ALPHA.-TOCOPHEROL
  2. MIRALAX [Suspect]
     Active Substance: POLYETHYLENE GLYCOL 3350
     Indication: CONSTIPATION
     Dosage: 1 DF, UNK
     Route: 048
     Dates: start: 201601
  3. STATIN [Concomitant]
     Active Substance: UNSPECIFIED INGREDIENT
  4. CALCIUM [Concomitant]
     Active Substance: CALCIUM
  5. MIRALAX [Suspect]
     Active Substance: POLYETHYLENE GLYCOL 3350
     Indication: CONSTIPATION PROPHYLAXIS
     Dosage: 0.5 UNK, UNK
     Dates: start: 201601

REACTIONS (4)
  - Poor quality drug administered [Unknown]
  - Underdose [None]
  - Product physical consistency issue [Unknown]
  - Product use issue [Unknown]

NARRATIVE: CASE EVENT DATE: 20161005
